FAERS Safety Report 7618841-6 (Version None)
Quarter: 2011Q3

REPORT INFORMATION
  Report Type: 
  Country: None (occurrence: None)
  Receive Date: 20110718
  Receipt Date: 20110715
  Transmission Date: 20111222
  Serious: Yes (Hospitalization)
  Sender: FDA-Public Use
  Company Number: US-VERTEX PHARMACEUTICALS INC.-AE-2011-000489

PATIENT
  Age: 50 Year
  Sex: Female

DRUGS (3)
  1. PEGINTERFERON [Concomitant]
     Indication: HEPATITIS C
     Dates: start: 20110617
  2. INCIVEK [Suspect]
     Indication: HEPATITIS C
     Route: 048
     Dates: start: 20110617
  3. RIBAVIRIN [Concomitant]
     Indication: HEPATITIS C
     Dates: start: 20110617

REACTIONS (5)
  - ECHOCARDIOGRAM ABNORMAL [None]
  - VOMITING [None]
  - CHEST PAIN [None]
  - HEADACHE [None]
  - NAUSEA [None]
